FAERS Safety Report 7166496-X (Version None)
Quarter: 2010Q4

REPORT INFORMATION
  Report Type: 
  Country: None (occurrence: None)
  Receive Date: 20101216
  Receipt Date: 20100910
  Transmission Date: 20110411
  Serious: Yes (Hospitalization, Other)
  Sender: FDA-Public Use
  Company Number: HU-BRISTOL-MYERS SQUIBB COMPANY-15440514

PATIENT
  Age: 55 Year
  Sex: Male
  Weight: 95 kg

DRUGS (3)
  1. CETUXIMAB [Suspect]
     Indication: HEAD AND NECK CANCER
     Dosage: NO OF INF: 15
     Route: 042
     Dates: start: 20100329, end: 20100712
  2. CISPLATIN [Suspect]
     Indication: HEAD AND NECK CANCER
     Dosage: NO OF INF: 4
     Route: 042
     Dates: start: 20100329, end: 20100621
  3. FLUOROURACIL [Suspect]
     Indication: HEAD AND NECK CANCER
     Dosage: NO OF INF: 4
     Route: 042
     Dates: start: 20100329, end: 20100625

REACTIONS (1)
  - PERICARDITIS [None]
